FAERS Safety Report 8220667 (Version 2)
Quarter: 2013Q1

REPORT INFORMATION
  Report Type: Spontaneous
  Country: VE (occurrence: VE)
  Receive Date: 20111102
  Receipt Date: 20130325
  Transmission Date: 20140127
  Serious: Yes (Hospitalization, Other)
  Sender: FDA-Public Use
  Company Number: VE-ROCHE-1001874

PATIENT
  Sex: Female

DRUGS (5)
  1. XOLAIR [Suspect]
     Indication: ASTHMA
     Route: 058
     Dates: start: 201105, end: 201106
  2. DIOVAN [Suspect]
     Indication: HYPERTENSION
     Route: 048
     Dates: start: 2010
  3. PANKREON [Concomitant]
     Route: 065
  4. ZOLTUM [Concomitant]
     Route: 065
  5. VANNAIR [Concomitant]
     Route: 065
     Dates: start: 2009, end: 2011

REACTIONS (5)
  - Pancreatitis [Recovered/Resolved]
  - Bacterial infection [Recovering/Resolving]
  - Abdominal pain [Recovered/Resolved]
  - Anaemia [Not Recovered/Not Resolved]
  - Dyspnoea [Recovered/Resolved]
